FAERS Safety Report 16359927 (Version 1)
Quarter: 2019Q2

REPORT INFORMATION
  Report Type: Spontaneous
  Country: US (occurrence: US)
  Receive Date: 20190419
  Receipt Date: 20190419
  Transmission Date: 20190711
  Serious: No
  Sender: FDA-Public Use
  Company Number: None

PATIENT
  Age: 34 Year
  Sex: Female

DRUGS (1)
  1. LEUPROLIDE INJ 1MG/0.2 [Suspect]
     Active Substance: LEUPROLIDE
     Dosage: ?          OTHER DOSE:5-10 UNITS PER CAL;?
     Route: 058
     Dates: start: 20190218

REACTIONS (1)
  - Inappropriate schedule of product administration [None]

NARRATIVE: CASE EVENT DATE: 20190419
